FAERS Safety Report 6120345-7 (Version None)
Quarter: 2009Q1

REPORT INFORMATION
  Report Type: 
  Country: None (occurrence: None)
  Receive Date: 20090312
  Receipt Date: 20090312
  Transmission Date: 20090719
  Serious: Yes (Other)
  Sender: FDA-Public Use
  Company Number: None

PATIENT
  Age: 39 Year
  Sex: Female
  Weight: 90.7194 kg

DRUGS (1)
  1. TUBERCULIN SKIN TEST PPD JHP PHARM, LLC ROCHESTER, MI 48307 [Suspect]
     Indication: TUBERCULOSIS TEST
     Dosage: 0.1 ML ONCE ID
     Route: 023
     Dates: start: 20090311, end: 20090311

REACTIONS (2)
  - PRURITUS [None]
  - TACHYCARDIA [None]
